FAERS Safety Report 22142620 (Version 1)
Quarter: 2023Q1

REPORT INFORMATION
  Report Type: Spontaneous
  Country: US (occurrence: None)
  Receive Date: 20230324
  Receipt Date: 20230324
  Transmission Date: 20230418
  Serious: Yes (Hospitalization)
  Sender: FDA-Public Use
  Company Number: None

PATIENT
  Age: 62 Year
  Sex: Female

DRUGS (10)
  1. OPSUMIT [Suspect]
     Active Substance: MACITENTAN
     Indication: Pulmonary hypertension
     Dosage: FREQUENCY : DAILY;?
     Route: 048
     Dates: start: 20190228
  2. TADALAFIL [Suspect]
     Active Substance: TADALAFIL
  3. SELEXIPAG [Suspect]
     Active Substance: SELEXIPAG
  4. POTASSIUM CHLORIDE [Concomitant]
     Active Substance: POTASSIUM CHLORIDE
  5. LOPERAMIDE [Concomitant]
     Active Substance: LOPERAMIDE
  6. FAMOTIDINE [Concomitant]
     Active Substance: FAMOTIDINE
  7. STIOLTO RESPIMAT [Concomitant]
     Active Substance: OLODATEROL HYDROCHLORIDE\TIOTROPIUM BROMIDE MONOHYDRATE
  8. FOLIC ACID [Concomitant]
     Active Substance: FOLIC ACID
  9. Voltaren Top Gel [Concomitant]
  10. MELATONIN [Concomitant]
     Active Substance: MELATONIN

REACTIONS (6)
  - Acute respiratory failure [None]
  - Unresponsive to stimuli [None]
  - Cardiac failure congestive [None]
  - Hypoglycaemia [None]
  - Hypervolaemia [None]
  - Mental status changes [None]

NARRATIVE: CASE EVENT DATE: 20230227
